FAERS Safety Report 4820246-8 (Version None)
Quarter: 2005Q4

REPORT INFORMATION
  Report Type: 
  Country: None (occurrence: None)
  Receive Date: 20051011
  Receipt Date: 20050805
  Transmission Date: 20060501
  Serious: Yes (Other)
  Sender: FDA-Public Use
  Company Number: ENTC2005-0144

PATIENT

DRUGS (2)
  1. STALEVO 100 [Suspect]
     Dates: start: 20050501
  2. SINEMET [Suspect]

REACTIONS (2)
  - CONFUSIONAL STATE [None]
  - DISORIENTATION [None]
